FAERS Safety Report 20850886 (Version 1)
Quarter: 2022Q2

REPORT INFORMATION
  Report Type: Spontaneous
  Country: US (occurrence: US)
  Receive Date: 20220519
  Receipt Date: 20220519
  Transmission Date: 20220721
  Serious: No
  Sender: FDA-Public Use
  Company Number: US-PFIZER INC-202200284675

PATIENT
  Age: 78 Year
  Sex: Male
  Weight: 73.12 kg

DRUGS (3)
  1. MORPHINE SULFATE [Suspect]
     Active Substance: MORPHINE SULFATE
     Indication: Respiratory disorder
     Dosage: 5 MG (5 MG TO 10 MG ONCE A DAY OR AS NEEDED)
  2. MORPHINE SULFATE [Suspect]
     Active Substance: MORPHINE SULFATE
     Dosage: 10 MG (5 MG TO 10 MG ONCE A DAY OR AS NEEDED)
  3. MORPHINE SULFATE [Suspect]
     Active Substance: MORPHINE SULFATE
     Dosage: 2.5 MG

REACTIONS (3)
  - Therapeutic response unexpected [Unknown]
  - Off label use [Unknown]
  - Wrong technique in product usage process [Unknown]
